FAERS Safety Report 15500591 (Version 4)
Quarter: 2019Q2

REPORT INFORMATION
  Report Type: Report from Study
  Country: US (occurrence: US)
  Receive Date: 20181015
  Receipt Date: 20190426
  Transmission Date: 20190711
  Serious: Yes (Death, Other)
  Sender: FDA-Public Use
  Company Number: US-GILEAD-2018-0368167

PATIENT
  Age: 86 Year
  Sex: Female

DRUGS (2)
  1. IDELALISIB [Suspect]
     Active Substance: IDELALISIB
     Indication: CHRONIC LYMPHOCYTIC LEUKAEMIA
     Dosage: 150 MG, BID
     Route: 048
     Dates: start: 20180324
  2. IMMUNOGLOBULIN G HUMAN [Concomitant]
     Active Substance: HUMAN IMMUNOGLOBULIN G
     Dosage: MONTHLY
     Route: 042

REACTIONS (12)
  - Cerebrovascular accident [Unknown]
  - Nasopharyngitis [Unknown]
  - Parkinson^s disease [Not Recovered/Not Resolved]
  - Nail growth abnormal [Recovering/Resolving]
  - Peripheral swelling [Not Recovered/Not Resolved]
  - Immune system disorder [Unknown]
  - Onychoclasis [Not Recovered/Not Resolved]
  - Onychomadesis [Not Recovered/Not Resolved]
  - Death [Fatal]
  - Cellulitis [Not Recovered/Not Resolved]
  - Pain in extremity [Not Recovered/Not Resolved]
  - Nail hypertrophy [Unknown]

NARRATIVE: CASE EVENT DATE: 20190401
